FAERS Safety Report 7479894-1 (Version None)
Quarter: 2011Q2

REPORT INFORMATION
  Report Type: 
  Country: None (occurrence: None)
  Receive Date: 20110516
  Receipt Date: 20110513
  Transmission Date: 20111010
  Serious: Yes (Death, Other)
  Sender: FDA-Public Use
  Company Number: DK-PAR PHARMACEUTICAL, INC-2010SCPR000753

PATIENT

DRUGS (1)
  1. IBUPROFEN [Suspect]
     Indication: PATENT DUCTUS ARTERIOSUS
     Dosage: UNK
     Route: 065

REACTIONS (2)
  - NECROTISING COLITIS [None]
  - DEATH [None]
